FAERS Safety Report 6357333-1 (Version None)
Quarter: 2009Q3

REPORT INFORMATION
  Report Type: 
  Country: None (occurrence: None)
  Receive Date: 20090916
  Receipt Date: 20090902
  Transmission Date: 20100115
  Serious: Yes (Hospitalization)
  Sender: FDA-Public Use
  Company Number: US-BIOGENIDEC-2008BI022035

PATIENT
  Age: 22 Year
  Sex: Female

DRUGS (2)
  1. TYSABRI [Suspect]
     Indication: MULTIPLE SCLEROSIS
     Dosage: BASED ON LMP
     Route: 042
     Dates: start: 20080401, end: 20080501
  2. VITAMIN TAB [Concomitant]

REACTIONS (2)
  - PREGNANCY [None]
  - PREMATURE LABOUR [None]
